FAERS Safety Report 24063917 (Version 1)
Quarter: 2024Q3

REPORT INFORMATION
  Report Type: Spontaneous
  Country: JP (occurrence: JP)
  Receive Date: 20240709
  Receipt Date: 20240709
  Transmission Date: 20241017
  Serious: Yes (Death, Other)
  Sender: DR REDDYS
  Company Number: JP-RDY-LIT/JPN/24/0009920

PATIENT

DRUGS (1)
  1. AZACITIDINE [Suspect]
     Active Substance: AZACITIDINE
     Indication: Acute myeloid leukaemia
     Dosage: DAYS 1-7, EVERY 28 DAYS
     Route: 058

REACTIONS (3)
  - Haemophagocytic lymphohistiocytosis [Fatal]
  - Malignant neoplasm progression [Fatal]
  - Drug ineffective [Fatal]
